FAERS Safety Report 10550794 (Version 1)
Quarter: 2014Q4

REPORT INFORMATION
  Report Type: Spontaneous
  Country: JP (occurrence: None)
  Receive Date: 20141027
  Receipt Date: 20141027
  Transmission Date: 20150529
  Serious: Yes (Other)
  Sender: FDA-Public Use
  Company Number: OTH-LIT-2006007

PATIENT
  Age: 46 Month
  Sex: Male

DRUGS (2)
  1. PYRIDOXINE [Concomitant]
     Active Substance: PYRIDOXINE
  2. CYSTADANE [Suspect]
     Active Substance: BETAINE
     Indication: HOMOCYSTINURIA

REACTIONS (4)
  - Brain scan abnormal [None]
  - White matter lesion [None]
  - Hypermethioninaemia [None]
  - Medication error [None]
